FAERS Safety Report 9581118 (Version 1)
Quarter: 2013Q4

REPORT INFORMATION
  Report Type: Spontaneous
  Country: US (occurrence: US)
  Receive Date: 20131002
  Receipt Date: 20131002
  Transmission Date: 20140711
  Serious: Yes (Other)
  Sender: FDA-Public Use
  Company Number: US-ABBVIE-13P-163-1151618-00

PATIENT
  Age: 30 Year
  Sex: Male
  Weight: 78.54 kg

DRUGS (5)
  1. HUMIRA [Suspect]
     Indication: CROHN^S DISEASE
  2. CIMZIA [Concomitant]
     Indication: CROHN^S DISEASE
     Route: 050
  3. PREDNISONE [Concomitant]
     Indication: PRODUCT USED FOR UNKNOWN INDICATION
  4. AZOPRIAT [Concomitant]
     Indication: PRODUCT USED FOR UNKNOWN INDICATION
  5. IRON [Concomitant]
     Indication: ANAEMIA

REACTIONS (6)
  - Intestinal stenosis [Unknown]
  - Drug ineffective [Unknown]
  - Surgery [Unknown]
  - Nausea [Unknown]
  - Crohn^s disease [Unknown]
  - Weight decreased [Unknown]
